FAERS Safety Report 8941937 (Version 1)
Quarter: 2012Q4

REPORT INFORMATION
  Report Type: 
  Country: ES (occurrence: ES)
  Receive Date: 20121203
  Receipt Date: 20121203
  Transmission Date: 20130627
  Serious: Yes (Death, Hospitalization)
  Sender: FDA-Public Use
  Company Number: ES-TEVA-371813ISR

PATIENT
  Age: 69 Year
  Sex: Male

DRUGS (2)
  1. ETOPOSIDO TEVAGEN [Suspect]
     Indication: SMALL CELL LUNG CANCER RECURRENT
     Dosage: total dose:190 mg
     Route: 042
     Dates: start: 20111221, end: 201112
  2. CISPLATIN [Suspect]
     Indication: SMALL CELL LUNG CANCER RECURRENT
     Dosage: total dose:143 mg
     Route: 042
     Dates: start: 20111121, end: 201112

REACTIONS (5)
  - Febrile neutropenia [Fatal]
  - Hypocalcaemia [Fatal]
  - Hypokalaemia [Fatal]
  - Thrombocytopenia [Fatal]
  - Pneumonia [Fatal]
